FAERS Safety Report 4699036-5 (Version None)
Quarter: 2005Q2

REPORT INFORMATION
  Report Type: 
  Country: None (occurrence: None)
  Receive Date: 20050623
  Receipt Date: 20050623
  Transmission Date: 20051028
  Serious: Yes (Death)
  Sender: FDA-Public Use
  Company Number: None

PATIENT
  Age: 80 Year
  Sex: Female
  Weight: 61.6892 kg

DRUGS (2)
  1. NATRECOR [Suspect]
     Indication: CARDIAC FAILURE CONGESTIVE
     Dosage: 2 MICROGRAMS   KILOGRAM   INTRAVENOU
     Route: 042
     Dates: start: 20050329, end: 20050329
  2. NATRECOR [Suspect]
     Indication: DYSPNOEA
     Dosage: 2 MICROGRAMS   KILOGRAM   INTRAVENOU
     Route: 042
     Dates: start: 20050329, end: 20050329

REACTIONS (3)
  - BLOOD PRESSURE DECREASED [None]
  - OXYGEN SATURATION DECREASED [None]
  - SKIN DISCOLOURATION [None]
